FAERS Safety Report 22104477 (Version 1)
Quarter: 2023Q1

REPORT INFORMATION
  Report Type: Spontaneous
  Country: BR (occurrence: BR)
  Receive Date: 20230316
  Receipt Date: 20230316
  Transmission Date: 20230418
  Serious: Yes (Other)
  Sender: FDA-Public Use
  Company Number: BR-BAYER-2022A087158

PATIENT
  Age: 34 Year
  Sex: Female

DRUGS (1)
  1. KYLEENA [Suspect]
     Active Substance: LEVONORGESTREL
     Indication: Contraception
     Dosage: 17.5?G/DAY
     Route: 015
     Dates: start: 202102, end: 20220220

REACTIONS (7)
  - Pregnancy with contraceptive device [Recovered/Resolved]
  - Subchorionic haematoma [None]
  - Eclampsia [None]
  - Drug ineffective [None]
  - Pre-eclampsia [None]
  - Premature delivery [None]
  - Pre-eclampsia [None]

NARRATIVE: CASE EVENT DATE: 20220626
